FAERS Safety Report 4694132-0 (Version None)
Quarter: 2005Q2

REPORT INFORMATION
  Report Type: 
  Country: None (occurrence: None)
  Receive Date: 20050616
  Receipt Date: 20050616
  Transmission Date: 20051028
  Serious: Yes (Other)
  Sender: FDA-Public Use
  Company Number: None

PATIENT
  Age: 4 Year
  Sex: Male

DRUGS (2)
  1. KIDS COLORBLOCK WHITE FOAM SPF 30 AEROSOL FOAM [Suspect]
     Indication: PROPHYLAXIS
     Dosage: 1 APPLICATION
  2. KIDS COLORBLOCK WHITE FOAM SPF 30 AEROSOL FOAM [Suspect]
     Indication: TANNING
     Dosage: 1 APPLICATION

REACTIONS (7)
  - ANAPHYLACTIC REACTION [None]
  - APPLICATION SITE ERYTHEMA [None]
  - APPLICATION SITE PRURITUS [None]
  - CHILLS [None]
  - LOSS OF CONSCIOUSNESS [None]
  - TACHYCARDIA [None]
  - UNRESPONSIVE TO VERBAL STIMULI [None]
